FAERS Safety Report 21196486 (Version 1)
Quarter: 2022Q3

REPORT INFORMATION
  Report Type: Spontaneous
  Country: GB (occurrence: GB)
  Receive Date: 20220810
  Receipt Date: 20220810
  Transmission Date: 20221026
  Serious: Yes (Hospitalization, Other)
  Sender: FDA-Public Use
  Company Number: None

PATIENT
  Age: 90 Year

DRUGS (13)
  1. RAMIPRIL [Suspect]
     Active Substance: RAMIPRIL
     Indication: Product used for unknown indication
     Dosage: 5 MILLIGRAM DAILY; AT NIGHT, UNIT DOSE AND UNIT STRENGTH :5 MG, FREQUENCY ; 1, FREQUENCY TIME : 1 DA
     Route: 048
  2. AMILORIDE\FUROSEMIDE [Concomitant]
     Active Substance: AMILORIDE\FUROSEMIDE
     Indication: Product used for unknown indication
  3. ASPIRIN [Concomitant]
     Active Substance: ASPIRIN
     Indication: Product used for unknown indication
     Dosage: 75 MILLIGRAM DAILY; UNIT DOSE AND UNIT STRENGTH : 75 MG, FREQUENCY ; 1, FREQUENCY TIME : 1 DAYS,
     Route: 048
  4. ATORVASTATIN [Concomitant]
     Active Substance: ATORVASTATIN
     Indication: Product used for unknown indication
     Dosage: 40 MILLIGRAM DAILY; UNIT DOSE AND UNIT STRENGTH : 40 MG, FREQUENCY ; 1, FREQUENCY TIME : 1 DAYS,
     Route: 048
  5. FELODIPINE [Concomitant]
     Active Substance: FELODIPINE
     Indication: Product used for unknown indication
  6. FUROSEMIDE [Concomitant]
     Active Substance: FUROSEMIDE
     Indication: Product used for unknown indication
     Dosage: 20 MILLIGRAM DAILY; EACH MORNING, UNIT DOSE AND UNIT STRENGTH : 20 MG, FREQUENCY ; 1, FREQUENCY TIME
     Route: 048
  7. LERCANIDIPINE [Concomitant]
     Active Substance: LERCANIDIPINE
     Indication: Product used for unknown indication
     Dosage: 10 MILLIGRAM DAILY; UNIT DOSE AND UNIT STRENGTH :10 MG, FREQUENCY ; 1, FREQUENCY TIME : 1 DAYS,
     Route: 048
  8. OMEPRAZOLE [Concomitant]
     Active Substance: OMEPRAZOLE
     Indication: Product used for unknown indication
     Dosage: 20 MILLIGRAM DAILY; UNIT DOSE AND UNIT STRENGTH : 20 MG, FREQUENCY ; 1, FREQUENCY TIME : 1 DAYS,
     Route: 048
  9. SPIRONOLACTONE [Concomitant]
     Active Substance: SPIRONOLACTONE
     Indication: Product used for unknown indication
  10. TRIAMTERENE [Concomitant]
     Active Substance: TRIAMTERENE
     Indication: Product used for unknown indication
  11. BUPRENORPHINE [Concomitant]
     Active Substance: BUPRENORPHINE
     Indication: Product used for unknown indication
     Dosage: STRENGTH :5MCG/HOUR, UNIT DOSE : 1 DOSAGE FORMS, FREQUENCY ; 1, FREQUENCY TIME : 1 WEEKS,
     Route: 062
  12. CALCIUM\CHOLECALCIFEROL [Concomitant]
     Active Substance: CALCIUM\CHOLECALCIFEROL
     Indication: Product used for unknown indication
     Dosage: 2 DOSAGE FORMS DAILY; UNIT DOSE : 1 DOSAGE FORMS, FREQUENCY ; 2, FREQUENCY TIME : 1 DAYS,
     Route: 048
  13. POLYETHYLENE GLYCOLS [Concomitant]
     Active Substance: POLYETHYLENE GLYCOLS
     Indication: Product used for unknown indication
     Dosage: 1 DOSAGE FORMS DAILY; SACHET, UNIT DOSE :1 DOSAGE FORMS  , FREQUENCY ; 1, FREQUENCY TIME : 1 DAYS

REACTIONS (2)
  - Hyponatraemia [Recovered/Resolved]
  - Confusional state [Unknown]
